FAERS Safety Report 13216860 (Version 1)
Quarter: 2017Q1

REPORT INFORMATION
  Report Type: Report from Study
  Country: US (occurrence: US)
  Receive Date: 20170210
  Receipt Date: 20170210
  Transmission Date: 20170428
  Serious: Yes (Other)
  Sender: FDA-Public Use
  Company Number: US-CIPLA LTD.-2017US01664

PATIENT

DRUGS (6)
  1. CARBOPLATIN. [Suspect]
     Active Substance: CARBOPLATIN
     Indication: OVARIAN EPITHELIAL CANCER
     Dosage: UNK, EVERY 3 WEEKS
  2. CARBOPLATIN. [Suspect]
     Active Substance: CARBOPLATIN
     Indication: FALLOPIAN TUBE CANCER
  3. CARBOPLATIN. [Suspect]
     Active Substance: CARBOPLATIN
     Indication: PERITONEAL NEOPLASM
  4. PACLITAXEL. [Suspect]
     Active Substance: PACLITAXEL
     Indication: OVARIAN EPITHELIAL CANCER
     Dosage: 135 MG/M2, EVERY 3 WEEKS
  5. PACLITAXEL. [Suspect]
     Active Substance: PACLITAXEL
     Indication: PERITONEAL NEOPLASM
  6. PACLITAXEL. [Suspect]
     Active Substance: PACLITAXEL
     Indication: FALLOPIAN TUBE CANCER

REACTIONS (1)
  - Hyponatraemia [Unknown]
